FAERS Safety Report 4675595-3 (Version None)
Quarter: 2005Q2

REPORT INFORMATION
  Report Type: 
  Country: None (occurrence: None)
  Receive Date: 20050527
  Receipt Date: 20050421
  Transmission Date: 20051028
  Serious: No
  Sender: FDA-Public Use
  Company Number: US-BRISTOL-MYERS SQUIBB COMPANY-12942199

PATIENT
  Age: 75 Year
  Sex: Female
  Weight: 54 kg

DRUGS (3)
  1. ABILIFY [Suspect]
     Indication: BIPOLAR DISORDER
     Dates: start: 20050413
  2. DEMEROL [Concomitant]
  3. LIDOCAINE [Concomitant]

REACTIONS (6)
  - ABNORMAL DREAMS [None]
  - ANOREXIA [None]
  - CHROMATURIA [None]
  - INSOMNIA [None]
  - NAUSEA [None]
  - THINKING ABNORMAL [None]
